FAERS Safety Report 8148295-5 (Version None)
Quarter: 2012Q1

REPORT INFORMATION
  Report Type: 
  Country: None (occurrence: None)
  Receive Date: 20120218
  Receipt Date: 20110513
  Transmission Date: 20120608
  Serious: No
  Sender: FDA-Public Use
  Company Number: US-ALLERGAN-1106639US

PATIENT
  Age: 47 Year
  Sex: Female

DRUGS (1)
  1. BOTOX COSMETIC [Suspect]
     Indication: SKIN WRINKLING
     Dosage: 4 UNITS, SINGLE
     Route: 030
     Dates: start: 20110428, end: 20110428

REACTIONS (7)
  - MUSCLE TIGHTNESS [None]
  - THROAT TIGHTNESS [None]
  - MUSCULOSKELETAL STIFFNESS [None]
  - GASTRIC DISORDER [None]
  - PHARYNGEAL HYPOAESTHESIA [None]
  - COLD SWEAT [None]
  - HYPERHIDROSIS [None]
